FAERS Safety Report 6544757-2 (Version None)
Quarter: 2010Q1

REPORT INFORMATION
  Report Type: 
  Country: None (occurrence: None)
  Receive Date: 20100121
  Receipt Date: 20100118
  Transmission Date: 20100710
  Serious: Yes (Death, Hospitalization)
  Sender: FDA-Public Use
  Company Number: DE-BAYER-201010834GPV

PATIENT
  Age: 70 Year
  Weight: 90 kg

DRUGS (13)
  1. AVELOX [Suspect]
     Indication: PNEUMONIA
     Route: 042
     Dates: start: 20091201, end: 20091211
  2. PIPRIL [Concomitant]
     Indication: PNEUMONIA
     Dates: start: 20091201
  3. PIPERACILLIN AND TAZOBACTAM [Concomitant]
     Indication: PNEUMONIA
     Dates: start: 20091201
  4. KETANEST [Concomitant]
     Indication: SEDATION
     Route: 041
  5. DORMICUM [Concomitant]
     Indication: SEDATION
     Route: 041
  6. SUFENTANIL [Concomitant]
     Route: 041
  7. OXYGEN [Concomitant]
  8. FORADIL [Concomitant]
  9. VENTOLAIR [Concomitant]
  10. DELIX 5 PLUS [Concomitant]
     Dosage: TOTAL DAILY DOSE: 5 MG  UNIT DOSE: 5 MG
  11. PANTOPRAZOLE [Concomitant]
     Dosage: TOTAL DAILY DOSE: 40 MG  UNIT DOSE: 40 MG
  12. ALLOPURINOL [Concomitant]
     Dosage: TOTAL DAILY DOSE: 150 MG  UNIT DOSE: 300 MG
  13. FLUCONAZOLE [Concomitant]
     Route: 065

REACTIONS (18)
  - ATRIAL FLUTTER [None]
  - BLOOD CULTURE POSITIVE [None]
  - CANDIDA SEPSIS [None]
  - CHOLECYSTITIS [None]
  - CHOLELITHIASIS [None]
  - CHOLESTASIS [None]
  - CIRCULATORY COLLAPSE [None]
  - HEART RATE INCREASED [None]
  - HEPATIC FAILURE [None]
  - HEPATIC STEATOSIS [None]
  - HEPATOMEGALY [None]
  - HYDROCHOLECYSTIS [None]
  - MORAXELLA INFECTION [None]
  - PNEUMONIA PNEUMOCOCCAL [None]
  - PULMONARY SEPSIS [None]
  - STAPHYLOCOCCAL INFECTION [None]
  - TRANSAMINASES INCREASED [None]
  - TYPE 2 DIABETES MELLITUS [None]
